FAERS Safety Report 5852042-7 (Version None)
Quarter: 2008Q3

REPORT INFORMATION
  Report Type: 
  Country: None (occurrence: None)
  Receive Date: 20080821
  Receipt Date: 20080811
  Transmission Date: 20090109
  Serious: Yes (Hospitalization, Other)
  Sender: FDA-Public Use
  Company Number: GB-RANBAXY-2008RR-17294

PATIENT

DRUGS (2)
  1. FUROSEMIDE TABLETS BP 40MG [Suspect]
     Dosage: 40 MG, UNK
     Route: 048
  2. SPIRONOLACTONE [Suspect]
     Indication: ASCITES
     Dosage: 25 MG, TID
     Route: 048

REACTIONS (3)
  - DRUG INEFFECTIVE [None]
  - HYPONATRAEMIA [None]
  - HYPOTENSION [None]
